FAERS Safety Report 7631360 (Version 2)
Quarter: 2025Q3

REPORT INFORMATION
  Report Type: Spontaneous
  Country: IN (occurrence: IN)
  Receive Date: 20101015
  Receipt Date: 20250822
  Transmission Date: 20251020
  Serious: Yes (Other)
  Sender: NOVARTIS
  Company Number: PHHY2010IN66394

PATIENT
  Age: 22 Year
  Sex: Male

DRUGS (3)
  1. CLOFAZIMINE [Suspect]
     Active Substance: CLOFAZIMINE
     Indication: Lepromatous leprosy
     Route: 065
  2. RIFAMPIN [Suspect]
     Active Substance: RIFAMPIN
     Indication: Lepromatous leprosy
     Route: 065
  3. DAPSONE [Suspect]
     Active Substance: DAPSONE
     Indication: Lepromatous leprosy
     Route: 065

REACTIONS (7)
  - Neuritis [Recovered/Resolved]
  - Facial paralysis [Recovered/Resolved]
  - Type IV hypersensitivity reaction [Unknown]
  - Skin plaque [Unknown]
  - Erythema [Unknown]
  - Tenderness [Unknown]
  - Skin lesion [Unknown]
